FAERS Safety Report 20596925 (Version 1)
Quarter: 2022Q1

REPORT INFORMATION
  Report Type: Spontaneous
  Country: US (occurrence: US)
  Receive Date: 20220315
  Receipt Date: 20220315
  Transmission Date: 20220423
  Serious: No
  Sender: FDA-Public Use
  Company Number: US-PERRIGO-21US002053

PATIENT
  Age: 61 Year
  Sex: Male
  Weight: 78.005 kg

DRUGS (6)
  1. NICOTINE POLACRILEX [Suspect]
     Active Substance: NICOTINE
     Indication: Smoking cessation therapy
     Dosage: 2 MG, PRN
     Route: 002
     Dates: start: 20210130, end: 20210208
  2. NAPROSYN                           /00256201/ [Concomitant]
     Indication: Pain
     Dosage: UNKNOWN, DAILY
     Route: 065
  3. CORTICOSTEROID NOS [Concomitant]
     Active Substance: CORTICOSTEROID NOS
     Indication: Seasonal allergy
     Dosage: UNKNOWN, PRN
     Route: 045
  4. CORTICOSTEROID NOS [Concomitant]
     Active Substance: CORTICOSTEROID NOS
     Indication: Asthma
     Dosage: UNK, PRN
     Route: 055
  5. CHOLINE [Concomitant]
     Active Substance: CHOLINE
     Indication: Supplementation therapy
     Dosage: UNKNOWN, UNKNOWN
     Route: 065
     Dates: start: 2020
  6. VITAMINS NOS [Concomitant]
     Active Substance: VITAMINS
     Indication: Supplementation therapy
     Dosage: UNKNOWN, DAILY
     Route: 065

REACTIONS (2)
  - Abdominal discomfort [Recovered/Resolved]
  - Wrong technique in product usage process [Recovered/Resolved]

NARRATIVE: CASE EVENT DATE: 20210130
